FAERS Safety Report 7537097-6 (Version None)
Quarter: 2011Q2

REPORT INFORMATION
  Report Type: 
  Country: None (occurrence: None)
  Receive Date: 20110609
  Receipt Date: 20110530
  Transmission Date: 20111010
  Serious: Yes (Other)
  Sender: FDA-Public Use
  Company Number: PHBS2010DE00585

PATIENT
  Sex: Female

DRUGS (2)
  1. SANDOSTATIN LAR [Suspect]
     Indication: ACROMEGALY
     Dosage: 10 MG, QMO
     Dates: start: 20091221, end: 20100504
  2. SANDOSTATIN LAR [Suspect]
     Dosage: 20 MG, QMO
     Dates: start: 20100601

REACTIONS (3)
  - ASTHENIA [None]
  - ALOPECIA [None]
  - DEPRESSED MOOD [None]
